FAERS Safety Report 20181843 (Version 1)
Quarter: 2021Q4

REPORT INFORMATION
  Report Type: Spontaneous
  Country: US (occurrence: US)
  Receive Date: 20211214
  Receipt Date: 20211214
  Transmission Date: 20220303
  Serious: Yes (Life-Threatening, Hospitalization, Other)
  Sender: FDA-Public Use
  Company Number: US-MLMSERVICE-20211126-3241466-1

PATIENT
  Age: 77 Year
  Sex: Male

DRUGS (1)
  1. IBUPROFEN [Suspect]
     Active Substance: IBUPROFEN
     Indication: Product used for unknown indication
     Dosage: UNK, QD

REACTIONS (4)
  - Duodenal ulcer [Recovered/Resolved]
  - Haemoglobin decreased [Recovering/Resolving]
  - Vascular pseudoaneurysm [Recovered/Resolved]
  - Melaena [Recovered/Resolved]
